FAERS Safety Report 21385253 (Version 1)
Quarter: 2022Q3

REPORT INFORMATION
  Report Type: Report from Study
  Country: CA (occurrence: None)
  Receive Date: 20220928
  Receipt Date: 20220928
  Transmission Date: 20221026
  Serious: Yes (Other)
  Sender: FDA-Public Use
  Company Number: CA-PFIZER INC-202200461746

PATIENT
  Age: 62 Year
  Sex: Male

DRUGS (8)
  1. METHOTREXATE [Suspect]
     Active Substance: METHOTREXATE
     Indication: Product used for unknown indication
     Route: 065
  2. METHOTREXATE [Suspect]
     Active Substance: METHOTREXATE
     Route: 065
  3. ENTYVIO [Suspect]
     Active Substance: VEDOLIZUMAB
     Indication: Crohn^s disease
     Route: 042
  4. ENTYVIO [Suspect]
     Active Substance: VEDOLIZUMAB
     Route: 042
  5. ENTYVIO [Suspect]
     Active Substance: VEDOLIZUMAB
     Route: 042
  6. ENTYVIO [Suspect]
     Active Substance: VEDOLIZUMAB
     Route: 042
  7. ENTYVIO [Suspect]
     Active Substance: VEDOLIZUMAB
     Route: 042
  8. STELARA [Concomitant]
     Active Substance: USTEKINUMAB
     Route: 065

REACTIONS (9)
  - Off label use [Unknown]
  - Therapeutic reaction time decreased [Unknown]
  - Irritability [Unknown]
  - Nausea [Unknown]
  - Pain [Unknown]
  - Constipation [Unknown]
  - Malaise [Unknown]
  - Abdominal pain [Unknown]
  - Crohn^s disease [Unknown]
